FAERS Safety Report 7442757-1 (Version None)
Quarter: 2011Q2

REPORT INFORMATION
  Report Type: 
  Country: None (occurrence: None)
  Receive Date: 20110428
  Receipt Date: 20110415
  Transmission Date: 20111010
  Serious: Yes (Hospitalization, Other)
  Sender: FDA-Public Use
  Company Number: RU-JNJFOC-20110407885

PATIENT
  Age: 44 Year
  Sex: Female

DRUGS (7)
  1. AZATHIOPRINE [Concomitant]
  2. MESALAMINE [Concomitant]
  3. PREDNISONE [Concomitant]
  4. ENEMAS [Concomitant]
  5. INTERFERON ALFA-2B [Concomitant]
  6. REMICADE [Suspect]
     Indication: COLITIS ULCERATIVE
     Dosage: 4TH INFUSION
     Route: 042
  7. REMICADE [Suspect]
     Route: 042

REACTIONS (1)
  - CYTOMEGALOVIRUS INFECTION [None]
